FAERS Safety Report 5389642-7 (Version None)
Quarter: 2007Q3

REPORT INFORMATION
  Report Type: 
  Country: None (occurrence: None)
  Receive Date: 20070717
  Receipt Date: 20070709
  Transmission Date: 20080115
  Serious: Yes (Death, Life-Threatening, Hospitalization)
  Sender: FDA-Public Use
  Company Number: US-AMGEN-US203688

PATIENT
  Sex: Female

DRUGS (4)
  1. ETANERCEPT [Suspect]
     Indication: RHEUMATOID ARTHRITIS
     Route: 058
     Dates: start: 19990721, end: 20060607
  2. METHOTREXATE [Concomitant]
  3. MORPHINE [Concomitant]
     Dates: start: 20060101
  4. DURAGESIC-100 [Concomitant]
     Dates: start: 20060101, end: 20060101

REACTIONS (2)
  - CARDIAC ARREST [None]
  - NON-HODGKIN'S LYMPHOMA [None]
